FAERS Safety Report 9182207 (Version 1)
Quarter: 2012Q4

REPORT INFORMATION
  Report Type: 
  Country: BR (occurrence: BR)
  Receive Date: 20121030
  Receipt Date: 20121030
  Transmission Date: 20130627
  Serious: Yes (Other)
  Sender: FDA-Public Use
  Company Number: PHHY2012BR097244

PATIENT
  Sex: Female
  Weight: 78 kg

DRUGS (7)
  1. DIOVAN HCT [Suspect]
     Indication: HYPERTENSION
     Dosage: 1 DF (320 mg vals, 12,5 mg hydro) daily
     Route: 048
     Dates: start: 201110
  2. ARTICHOKE [Concomitant]
     Indication: LIVER DISORDER
     Route: 048
  3. EUTHYROX [Concomitant]
     Indication: THYROID HORMONE REPLACEMENT THERAPY
     Dosage: 1 DF, in the morning
     Route: 048
  4. OSSOTRAT-D [Concomitant]
     Indication: CALCIUM DEFICIENCY
     Dosage: 1 DF, daily
     Route: 048
  5. DIAMICRON [Concomitant]
     Indication: BLOOD GLUCOSE INCREASED
     Dosage: 1 DF, daily
     Route: 048
  6. GLIFAGE XR [Concomitant]
     Indication: BLOOD GLUCOSE INCREASED
     Dosage: 1 DF, daily
     Route: 048
  7. TRAJENTA [Concomitant]
     Indication: BLOOD GLUCOSE INCREASED
     Dosage: 1 DF, daily
     Route: 048

REACTIONS (7)
  - Lymphoedema [Recovering/Resolving]
  - Visual impairment [Not Recovered/Not Resolved]
  - Blood glucose increased [Recovered/Resolved]
  - Hypertension [Not Recovered/Not Resolved]
  - Fall [Recovering/Resolving]
  - Joint injury [Recovering/Resolving]
  - Mobility decreased [Recovering/Resolving]
